FAERS Safety Report 24456513 (Version 2)
Quarter: 2024Q4

REPORT INFORMATION
  Report Type: Report from Study
  Country: US (occurrence: US)
  Receive Date: 20241017
  Receipt Date: 20241018
  Transmission Date: 20250115
  Serious: No
  Sender: ROCHE
  Company Number: US-ROCHE-3508752

PATIENT
  Age: 65 Year
  Sex: Male

DRUGS (3)
  1. RITUXAN [Suspect]
     Active Substance: RITUXIMAB
     Indication: Rheumatoid arthritis
     Dosage: INFUSE 1000MG INTRAVENOUSLY ON DAY 1 AND 15, REPEAT IN 6 MONTHS
     Route: 041
  2. RITUXAN [Suspect]
     Active Substance: RITUXIMAB
     Indication: Retinal neovascularisation
  3. LUCENTIS [Suspect]
     Active Substance: RANIBIZUMAB
     Indication: Retinal neovascularisation
     Route: 065

REACTIONS (2)
  - Drug ineffective [Unknown]
  - No adverse event [Unknown]
